FAERS Safety Report 11943637 (Version 2)
Quarter: 2016Q3

REPORT INFORMATION
  Report Type: Spontaneous
  Country: US (occurrence: US)
  Receive Date: 20160125
  Receipt Date: 20160726
  Transmission Date: 20161109
  Serious: No
  Sender: FDA-Public Use
  Company Number: US-UNITED THERAPEUTICS-UNT-2015-012702

PATIENT
  Age: 73 Year
  Sex: Female
  Weight: 86.17 kg

DRUGS (5)
  1. REMODULIN [Suspect]
     Active Substance: TREPROSTINIL
     Dosage: 0.022 ?G/KG/MIN, CONTINUING
  2. REMODULIN [Suspect]
     Active Substance: TREPROSTINIL
     Indication: PULMONARY ARTERIAL HYPERTENSION
     Dosage: 0.040 ?G/KG/MIN, CONTINUING
     Route: 058
     Dates: start: 20140513
  3. REMODULIN [Suspect]
     Active Substance: TREPROSTINIL
     Dosage: 0.054 ?G/KG/MIN, CONTINUING
     Route: 058
  4. REMODULIN [Suspect]
     Active Substance: TREPROSTINIL
     Dosage: 0.060 ?G/KG/MIN, CONTINUING
     Route: 058
  5. ADCIRCA [Concomitant]
     Active Substance: TADALAFIL
     Indication: PRODUCT USED FOR UNKNOWN INDICATION

REACTIONS (10)
  - Infusion site oedema [Not Recovered/Not Resolved]
  - Nausea [Unknown]
  - Infusion site pain [Not Recovered/Not Resolved]
  - Pyrexia [Recovered/Resolved]
  - Drug dose omission [Recovered/Resolved]
  - Device dislocation [Not Recovered/Not Resolved]
  - Diarrhoea [Unknown]
  - Infusion site pruritus [Unknown]
  - Infusion site erythema [Not Recovered/Not Resolved]
  - Infusion site induration [Unknown]

NARRATIVE: CASE EVENT DATE: 201510
